FAERS Safety Report 8348731-5 (Version None)
Quarter: 2012Q2

REPORT INFORMATION
  Report Type: 
  Country: None (occurrence: None)
  Receive Date: 20120508
  Receipt Date: 20120423
  Transmission Date: 20120825
  Serious: Yes (Death, Hospitalization)
  Sender: FDA-Public Use
  Company Number: FK201201265

PATIENT
  Age: 11 Year
  Sex: Female

DRUGS (2)
  1. CARBOPLATIN [Suspect]
     Indication: ASTROCYTOMA, LOW GRADE
     Dosage: 294 MG
     Dates: start: 20120420
  2. VINCRISTINE [Suspect]
     Indication: ASTROCYTOMA, LOW GRADE
     Dosage: 2 MG

REACTIONS (7)
  - TACHYPNOEA [None]
  - BRAIN DEATH [None]
  - HEPATIC FAILURE [None]
  - HAEMATOCHEZIA [None]
  - VOMITING [None]
  - RENAL FAILURE [None]
  - RESPIRATORY ARREST [None]
